FAERS Safety Report 4422050-1 (Version None)
Quarter: 2004Q3

REPORT INFORMATION
  Report Type: 
  Country: None (occurrence: None)
  Receive Date: 20040804
  Receipt Date: 20040719
  Transmission Date: 20050211
  Serious: Yes (Hospitalization, Other)
  Sender: FDA-Public Use
  Company Number: 04-276-0092

PATIENT
  Age: 55 Year
  Sex: Female

DRUGS (1)
  1. DOXORUBICIN HCL [Suspect]
     Indication: HEPATIC NEOPLASM MALIGNANT
     Dosage: 60MG/M^2 IV EVERY 3WK
     Route: 042
     Dates: start: 20040611, end: 20040701

REACTIONS (4)
  - BONE MARROW DEPRESSION [None]
  - FATIGUE [None]
  - LEUKOPENIA [None]
  - PLATELET COUNT DECREASED [None]
